FAERS Safety Report 16302801 (Version 3)
Quarter: 2019Q4

REPORT INFORMATION
  Report Type: Other
  Country: CA (occurrence: CA)
  Receive Date: 20190513
  Receipt Date: 20191009
  Transmission Date: 20200122
  Serious: Yes (Hospitalization, Other)
  Sender: FDA-Public Use
  Company Number: CA-ASTELLAS-2018US021201

PATIENT
  Age: 44 Year
  Sex: Male

DRUGS (12)
  1. ETANERCEPT [Suspect]
     Active Substance: ETANERCEPT
     Indication: IMMUNOSUPPRESSION
     Route: 065
  2. MYCOPHENOLATE MOFETIL. [Suspect]
     Active Substance: MYCOPHENOLATE MOFETIL
     Route: 041
  3. RAPAMUNE [Suspect]
     Active Substance: SIROLIMUS
     Indication: IMMUNOSUPPRESSION
     Dosage: UNK UNK, UNKNOWN FREQ.
     Route: 065
  4. TACROLIMUS. [Suspect]
     Active Substance: TACROLIMUS
     Dosage: UNK UNK, UNKNOWN FREQ.
     Route: 065
  5. TACROLIMUS. [Suspect]
     Active Substance: TACROLIMUS
     Dosage: UNK UNK, UNKNOWN FREQ.
     Route: 065
  6. MYCOPHENOLATE MOFETIL. [Suspect]
     Active Substance: MYCOPHENOLATE MOFETIL
     Route: 065
  7. KINERET [Suspect]
     Active Substance: ANAKINRA
     Indication: IMMUNOSUPPRESSION
     Route: 065
  8. MYCOPHENOLATE MOFETIL. [Suspect]
     Active Substance: MYCOPHENOLATE MOFETIL
     Indication: IMMUNOSUPPRESSION
     Route: 065
  9. TACROLIMUS. [Suspect]
     Active Substance: TACROLIMUS
     Indication: IMMUNOSUPPRESSION
     Dosage: UNK UNK, UNKNOWN FREQ.
     Route: 065
  10. ALEMTUZUMAB [Suspect]
     Active Substance: ALEMTUZUMAB
     Indication: IMMUNOSUPPRESSION
     Dosage: 30 MG, UNKNOWN FREQ. (SOLUTION)
     Route: 041
  11. APO MYCOPHENOLATE [Suspect]
     Active Substance: MYCOPHENOLIC ACID
     Indication: IMMUNOSUPPRESSION
     Route: 065
  12. APO MYCOPHENOLATE [Suspect]
     Active Substance: MYCOPHENOLIC ACID
     Route: 065

REACTIONS (6)
  - Post transplant lymphoproliferative disorder [Recovered/Resolved]
  - Diffuse large B-cell lymphoma [Recovered/Resolved]
  - Varicella [Recovered/Resolved]
  - Product use in unapproved indication [Recovered/Resolved]
  - Off label use [Recovered/Resolved]
  - Meningitis viral [Recovered/Resolved]
